FAERS Safety Report 12126527 (Version 1)
Quarter: 2016Q1

REPORT INFORMATION
  Report Type: Spontaneous
  Country: FR (occurrence: FR)
  Receive Date: 20160229
  Receipt Date: 20160229
  Transmission Date: 20160526
  Serious: Yes (Hospitalization)
  Sender: FDA-Public Use
  Company Number: FR-009507513-1602FRA011202

PATIENT
  Age: 89 Year
  Sex: Female

DRUGS (4)
  1. TRANDATE [Suspect]
     Active Substance: LABETALOL HYDROCHLORIDE
     Dosage: 1 DF, QD
     Route: 048
  2. METFORMIN [Suspect]
     Active Substance: METFORMIN HYDROCHLORIDE
     Dosage: 2 DF, QD
     Route: 048
  3. ATORVASTATIN [Suspect]
     Active Substance: ATORVASTATIN
     Dosage: 1 DF, QD
     Route: 048
  4. HYZAAR [Suspect]
     Active Substance: HYDROCHLOROTHIAZIDE\LOSARTAN POTASSIUM
     Dosage: 1 DF, QD.
     Route: 048

REACTIONS (2)
  - Fibula fracture [Recovering/Resolving]
  - Fall [Recovered/Resolved]
